FAERS Safety Report 16989303 (Version 1)
Quarter: 2019Q4

REPORT INFORMATION
  Report Type: Spontaneous
  Country: US (occurrence: US)
  Receive Date: 20191104
  Receipt Date: 20191104
  Transmission Date: 20200122
  Serious: No
  Sender: FDA-Public Use
  Company Number: US-PFIZER INC-2019470339

PATIENT
  Sex: Female
  Weight: 72.57 kg

DRUGS (1)
  1. CELECOXIB. [Suspect]
     Active Substance: CELECOXIB
     Indication: OSTEOARTHRITIS
     Dosage: 200 MG, DAILY
     Route: 048

REACTIONS (3)
  - Dyspnoea [Recovered/Resolved]
  - Pain [Unknown]
  - Osteoarthritis [Unknown]
